FAERS Safety Report 4501124-0 (Version None)
Quarter: 2004Q3

REPORT INFORMATION
  Report Type: 
  Country: None (occurrence: None)
  Receive Date: 20040927
  Receipt Date: 20040812
  Transmission Date: 20050211
  Serious: No
  Sender: FDA-Public Use
  Company Number: USA040875355

PATIENT
  Age: 52 Year
  Sex: Male
  Weight: 118 kg

DRUGS (8)
  1. STRATTERA [Suspect]
     Indication: ATTENTION DEFICIT/HYPERACTIVITY DISORDER
     Dosage: 120 MG/1 DAY
     Dates: start: 20040617
  2. AGGRENOX [Concomitant]
  3. CAPTOPRIL (CAPTOPRIL BIOCHEMIE) [Concomitant]
  4. CARDIZEM [Concomitant]
  5. HYDROCHLOROTHIAZIDE [Concomitant]
  6. CLONIDINE [Concomitant]
  7. POTASSIUM [Concomitant]
  8. LEXAPRO [Concomitant]

REACTIONS (5)
  - CONSTIPATION [None]
  - DECREASED APPETITE [None]
  - DRUG INEFFECTIVE [None]
  - INFREQUENT BOWEL MOVEMENTS [None]
  - INITIAL INSOMNIA [None]
